FAERS Safety Report 11697484 (Version 4)
Quarter: 2015Q4

REPORT INFORMATION
  Report Type: Spontaneous
  Country: US (occurrence: US)
  Receive Date: 20151104
  Receipt Date: 20151217
  Transmission Date: 20160304
  Serious: Yes (Other)
  Sender: FDA-Public Use
  Company Number: US-PFIZER INC-2015362493

PATIENT
  Age: 70 Year
  Sex: Female

DRUGS (2)
  1. LYRICA [Suspect]
     Active Substance: PREGABALIN
     Dosage: 100 MG, UNK
  2. LYRICA [Suspect]
     Active Substance: PREGABALIN
     Dosage: 200 MG, DAILY

REACTIONS (13)
  - Neuritis [Unknown]
  - Muscle spasms [Unknown]
  - Post laminectomy syndrome [Unknown]
  - Muscle contracture [Unknown]
  - Spinal laminectomy [Unknown]
  - Pain [Unknown]
  - Malaise [Unknown]
  - Back pain [Unknown]
  - Sleep disorder [Unknown]
  - Gait disturbance [Unknown]
  - Radiculopathy [Unknown]
  - Fatigue [Unknown]
  - Drug ineffective [Unknown]
